FAERS Safety Report 5023489-6 (Version None)
Quarter: 2006Q2

REPORT INFORMATION
  Report Type: 
  Country: None (occurrence: None)
  Receive Date: 20060606
  Receipt Date: 20060526
  Transmission Date: 20061013
  Serious: Yes (Hospitalization)
  Sender: FDA-Public Use
  Company Number: GBWYE666930MAY06

PATIENT
  Age: 70 Year
  Sex: Female

DRUGS (9)
  1. EFFEXOR [Suspect]
     Indication: DEPRESSION
     Dosage: ORAL
     Route: 048
     Dates: start: 20040901, end: 20041011
  2. EFFEXOR [Suspect]
     Indication: DEPRESSION
     Dosage: ORAL
     Route: 048
     Dates: start: 20041201, end: 20050801
  3. MIRTAZAPINE [Suspect]
     Indication: DEPRESSION
     Dosage: 45MG ORAL
     Route: 048
     Dates: start: 20050929, end: 20060214
  4. PAROXETINE [Suspect]
     Indication: DEPRESSION
     Dosage: ORAL
     Route: 048
     Dates: start: 20041012, end: 20050817
  5. LAMOTRIGINE [Concomitant]
  6. CARBAMAZEPINE [Concomitant]
  7. RISPERIDONE [Concomitant]
  8. TRIFLUOPERAZINE (TRIFLUOPERAZINE) [Concomitant]
  9. ZOPICLONE (ZOPICLONE) [Concomitant]

REACTIONS (4)
  - ANXIETY [None]
  - BRUXISM [None]
  - DRUG WITHDRAWAL SYNDROME [None]
  - DYSTONIA [None]
